FAERS Safety Report 12341532 (Version 1)
Quarter: 2016Q2

REPORT INFORMATION
  Report Type: Spontaneous
  Country: FR (occurrence: FR)
  Receive Date: 20160506
  Receipt Date: 20160506
  Transmission Date: 20160815
  Serious: Yes (Death, Hospitalization)
  Sender: FDA-Public Use
  Company Number: FR-SA-2016SA088365

PATIENT
  Age: 65 Year
  Sex: Male

DRUGS (15)
  1. LOVENOX [Suspect]
     Active Substance: ENOXAPARIN SODIUM
     Route: 058
     Dates: start: 20151114, end: 20151210
  2. KENZEN [Concomitant]
     Active Substance: CANDESARTAN
  3. LYRICA [Concomitant]
     Active Substance: PREGABALIN
  4. AMIKACINE MYLAN [Concomitant]
     Active Substance: AMIKACIN
     Dates: start: 20151117, end: 20151122
  5. VANCOMYCIN [Suspect]
     Active Substance: VANCOMYCIN
     Dosage: ROUTE-IV INFUSION
     Dates: start: 20151120, end: 20151202
  6. OXYCONTIN [Concomitant]
     Active Substance: OXYCODONE HYDROCHLORIDE
  7. OXYNORM [Concomitant]
     Active Substance: OXYCODONE HYDROCHLORIDE
     Indication: PAIN
     Dosage: MAXIMUM 4 TO 6/DAY
  8. TAZOBACTAM/PIPERACILLIN [Suspect]
     Active Substance: PIPERACILLIN SODIUM\TAZOBACTAM SODIUM
     Dosage: ROUTE-IV INFUSION
     Dates: start: 20151117, end: 20151208
  9. CRESTOR [Concomitant]
     Active Substance: ROSUVASTATIN CALCIUM
  10. AUGMENTIN [Concomitant]
     Active Substance: AMOXICILLIN\CLAVULANATE POTASSIUM
     Dates: start: 20151208
  11. VALSARTAN. [Suspect]
     Active Substance: VALSARTAN
     Route: 048
     Dates: start: 20151123, end: 20151210
  12. MIANSERINE [Concomitant]
     Active Substance: MIANSERIN HYDROCHLORIDE
  13. LASILIX [Suspect]
     Active Substance: FUROSEMIDE
     Route: 048
     Dates: start: 20151128, end: 20151210
  14. XANAX [Suspect]
     Active Substance: ALPRAZOLAM
     Route: 048
     Dates: start: 20151120, end: 20151210
  15. FORLAX [Concomitant]
     Active Substance: POLYETHYLENE GLYCOL 4000

REACTIONS (1)
  - Drug reaction with eosinophilia and systemic symptoms [Recovered/Resolved]

NARRATIVE: CASE EVENT DATE: 20151210
